FAERS Safety Report 7290772-3 (Version None)
Quarter: 2011Q1

REPORT INFORMATION
  Report Type: 
  Country: None (occurrence: None)
  Receive Date: 20110214
  Receipt Date: 20110203
  Transmission Date: 20110831
  Serious: Yes (Other)
  Sender: FDA-Public Use
  Company Number: FR-ROCHE-758008

PATIENT
  Age: 41 Year
  Sex: Male

DRUGS (3)
  1. TAMIFLU [Suspect]
     Indication: INFLUENZA
     Route: 065
     Dates: start: 20110117
  2. EFFERALGAN [Concomitant]
     Dosage: FREQUENCY: IF NEEDED.
  3. IBUPROFEN [Concomitant]

REACTIONS (1)
  - SUICIDAL IDEATION [None]
